FAERS Safety Report 6460160-8 (Version None)
Quarter: 2009Q4

REPORT INFORMATION
  Report Type: 
  Country: None (occurrence: None)
  Receive Date: 20091129
  Receipt Date: 20091123
  Transmission Date: 20100525
  Serious: Yes (Hospitalization)
  Sender: FDA-Public Use
  Company Number: US-RB-019991-09

PATIENT
  Age: 62 Year
  Sex: Female

DRUGS (2)
  1. SUBOXONE [Suspect]
     Route: 060
     Dates: start: 20090821, end: 20090826
  2. SUBOXONE [Suspect]
     Route: 060
     Dates: start: 20090827

REACTIONS (9)
  - CONFUSIONAL STATE [None]
  - CONSTIPATION [None]
  - DRUG DEPENDENCE [None]
  - DRUG WITHDRAWAL SYNDROME [None]
  - GLOSSITIS [None]
  - INFLUENZA [None]
  - INTESTINAL OBSTRUCTION [None]
  - PRURITUS [None]
  - SOMNOLENCE [None]
